FAERS Safety Report 5041727-0 (Version None)
Quarter: 2006Q2

REPORT INFORMATION
  Report Type: 
  Country: None (occurrence: None)
  Receive Date: 20060630
  Receipt Date: 20060616
  Transmission Date: 20061013
  Serious: Yes (Hospitalization, Other)
  Sender: FDA-Public Use
  Company Number: US-2006-015848

PATIENT
  Age: 75 Year
  Sex: Female

DRUGS (5)
  1. CAMPATH [Suspect]
     Indication: CHRONIC LYMPHOCYTIC LEUKAEMIA
     Dosage: 4 CYCLES
     Dates: start: 20051101, end: 20060201
  2. FLUDARA [Suspect]
     Indication: CHRONIC LYMPHOCYTIC LEUKAEMIA
     Dosage: SEE IMAGE
     Route: 042
     Dates: start: 20050701, end: 20050801
  3. FLUDARA [Suspect]
     Indication: CHRONIC LYMPHOCYTIC LEUKAEMIA
     Dosage: SEE IMAGE
     Route: 042
     Dates: start: 20051101, end: 20060201
  4. BACTRIM [Concomitant]
  5. FAMVIR [Concomitant]

REACTIONS (26)
  - AGRANULOCYTOSIS [None]
  - ASTHENIA [None]
  - BACTEROIDES BACTERAEMIA [None]
  - BONE MARROW FAILURE [None]
  - CELLULITIS [None]
  - CLOSTRIDIUM DIFFICILE TOXIN TEST POSITIVE [None]
  - COLITIS [None]
  - CULTURE STOOL POSITIVE [None]
  - CYSTITIS [None]
  - CYTOMEGALOVIRUS ANTIBODY POSITIVE [None]
  - DIABETES MELLITUS [None]
  - FEBRILE NEUTROPENIA [None]
  - FUNGUS STOOL IDENTIFIED [None]
  - HAEMATOCRIT DECREASED [None]
  - HYPOTHYROIDISM [None]
  - KLEBSIELLA INFECTION [None]
  - NITRITE URINE PRESENT [None]
  - PANCYTOPENIA [None]
  - PHLEBITIS SUPERFICIAL [None]
  - PLATELET COUNT INCREASED [None]
  - PLEURAL EFFUSION [None]
  - PSEUDOMONAS INFECTION [None]
  - PULMONARY EMBOLISM [None]
  - THROMBOPHLEBITIS SUPERFICIAL [None]
  - URINARY TRACT INFECTION PSEUDOMONAL [None]
  - VENOUS THROMBOSIS LIMB [None]
